FAERS Safety Report 10621498 (Version 1)
Quarter: 2014Q4

REPORT INFORMATION
  Report Type: Spontaneous
  Country: US (occurrence: US)
  Receive Date: 20141203
  Receipt Date: 20141203
  Transmission Date: 20150529
  Serious: Yes (Other)
  Sender: FDA-Public Use
  Company Number: US-CIPLA LTD.-2014US02268

PATIENT

DRUGS (5)
  1. FILGRASTIM [Concomitant]
     Active Substance: FILGRASTIM
     Indication: ANTINEUTROPHIL CYTOPLASMIC ANTIBODY DECREASED
     Dosage: 5 MG/KG, PER DAY STARTING FROM DAY 6
  2. TOPOTECAN [Suspect]
     Active Substance: TOPOTECAN\TOPOTECAN HYDROCHLORIDE
     Indication: DESMOPLASTIC SMALL ROUND CELL TUMOUR
     Dosage: 0.5 MG/M2/DAY ON DAYS 1, 2, AND 3
  3. IFOSFAMIDE. [Suspect]
     Active Substance: IFOSFAMIDE
     Indication: DESMOPLASTIC SMALL ROUND CELL TUMOUR
     Dosage: 1800 MG/M2/DAY ON DAYS 1, 2, 3, 4, AND 5
  4. CARBOPLATIN. [Suspect]
     Active Substance: CARBOPLATIN
     Indication: DESMOPLASTIC SMALL ROUND CELL TUMOUR
     Dosage: AUC  3 MG/ML/MIN ON DAYS 1, 2, AND 3
  5. MESNA. [Concomitant]
     Active Substance: MESNA
     Indication: DESMOPLASTIC SMALL ROUND CELL TUMOUR
     Dosage: 360 MG/M2 WAS ADMINISTERED ON DAYS 1 THROUGH 5

REACTIONS (1)
  - Disease progression [Unknown]
